FAERS Safety Report 6664362-7 (Version None)
Quarter: 2010Q2

REPORT INFORMATION
  Report Type: 
  Country: None (occurrence: None)
  Receive Date: 20100401
  Receipt Date: 20100322
  Transmission Date: 20101027
  Serious: Yes (Hospitalization)
  Sender: FDA-Public Use
  Company Number: BE-CELGENEUS-013-C5013-10030842

PATIENT
  Sex: Female
  Weight: 71.9 kg

DRUGS (13)
  1. THALIDOMIDE [Suspect]
     Indication: MULTIPLE MYELOMA
     Route: 048
     Dates: start: 20100222
  2. MELPHALAN HYDROCHLORIDE [Suspect]
     Indication: MULTIPLE MYELOMA
     Route: 065
     Dates: start: 20100222, end: 20100225
  3. PREDNISONE TAB [Suspect]
     Indication: MULTIPLE MYELOMA
     Route: 065
     Dates: start: 20100222, end: 20100225
  4. ACETYLSALICYL ACID [Concomitant]
     Indication: HYPERTENSION
     Route: 048
     Dates: start: 20100215
  5. SOTALOL HCL [Concomitant]
     Indication: HYPERTENSION
     Route: 048
     Dates: start: 20100212
  6. ALLOPURINOL [Concomitant]
     Indication: PROPHYLAXIS
     Route: 048
     Dates: start: 20100222
  7. CRANBERRY [Concomitant]
     Indication: PROPHYLAXIS
     Route: 048
     Dates: start: 20100222
  8. NATRIUM BICARBONAT [Concomitant]
     Route: 051
     Dates: start: 20100308, end: 20100308
  9. PARACETAMOL [Concomitant]
     Indication: DRUG USE FOR UNKNOWN INDICATION
     Route: 048
     Dates: start: 20100310, end: 20100310
  10. POTASSIUM CHLORIDE [Concomitant]
     Indication: HYPOKALAEMIA
     Route: 051
     Dates: start: 20100313, end: 20100314
  11. ADDAMEL [Concomitant]
     Indication: PROPHYLAXIS
     Route: 051
     Dates: start: 20100313, end: 20100315
  12. CERNEVIT-12 [Concomitant]
     Indication: PROPHYLAXIS
     Route: 051
     Dates: start: 20100313, end: 20100315
  13. MOVICOL [Concomitant]
     Indication: CONSTIPATION
     Route: 048
     Dates: start: 20100316

REACTIONS (1)
  - DIVERTICULITIS [None]
